FAERS Safety Report 4604238-X (Version None)
Quarter: 2005Q1

REPORT INFORMATION
  Report Type: 
  Country: None (occurrence: None)
  Receive Date: 20050308
  Receipt Date: 20050308
  Transmission Date: 20050727
  Serious: Yes (Life-Threatening, Hospitalization, Other)
  Sender: FDA-Public Use
  Company Number: None

PATIENT
  Age: 69 Year
  Sex: Male
  Weight: 134.5 kg

DRUGS (8)
  1. LISINOPRIL [Suspect]
     Indication: HYPERTENSION
     Dosage: 20 MG PO DAILY [CHRONIC]
     Route: 048
  2. FOLATE [Concomitant]
  3. NIASPAN [Concomitant]
  4. NORVASC [Concomitant]
  5. TOPROL-XL [Concomitant]
  6. BACTRIM [Concomitant]
  7. LASIX [Concomitant]
  8. ADVIL [Concomitant]

REACTIONS (10)
  - BURNING SENSATION [None]
  - CHEST PAIN [None]
  - FALL [None]
  - HAEMODIALYSIS [None]
  - INFLUENZA [None]
  - NAUSEA [None]
  - PNEUMONIA [None]
  - RENAL CYST [None]
  - RENAL FAILURE ACUTE [None]
  - RHABDOMYOLYSIS [None]
